FAERS Safety Report 25318370 (Version 2)
Quarter: 2025Q2

REPORT INFORMATION
  Report Type: Spontaneous
  Country: US (occurrence: US)
  Receive Date: 20250515
  Receipt Date: 20250527
  Transmission Date: 20250716
  Serious: No
  Sender: PFIZER
  Company Number: US-PFIZER INC-PV202500057723

PATIENT
  Age: 37 Year
  Sex: Female

DRUGS (1)
  1. IBRANCE [Suspect]
     Active Substance: PALBOCICLIB

REACTIONS (6)
  - Blood glucose increased [Unknown]
  - Lymphocyte count increased [Unknown]
  - Blood alkaline phosphatase increased [Unknown]
  - Nausea [Unknown]
  - Fatigue [Unknown]
  - Urinary tract infection [Unknown]
